FAERS Safety Report 4536677-X (Version None)
Quarter: 2004Q4

REPORT INFORMATION
  Report Type: 
  Country: None (occurrence: None)
  Receive Date: 20041220
  Receipt Date: 20041209
  Transmission Date: 20050328
  Serious: Yes (Hospitalization)
  Sender: FDA-Public Use
  Company Number: 2004108386

PATIENT
  Age: 61 Year
  Sex: Female

DRUGS (3)
  1. NEURONTIN [Suspect]
     Indication: NEUROPATHIC PAIN
     Dosage: 100 MG (100 MG, 1 IN 1 D), ORAL
     Route: 048
     Dates: start: 20041001, end: 20041012
  2. ZOLPIDEM TARTRATE [Concomitant]
  3. CLONAZEPAM [Concomitant]

REACTIONS (6)
  - AGITATION [None]
  - AMNESIA [None]
  - MENTAL DISORDER [None]
  - SYNCOPE [None]
  - TREMOR [None]
  - URINARY TRACT DISORDER [None]
